FAERS Safety Report 7356589-6 (Version None)
Quarter: 2011Q1

REPORT INFORMATION
  Report Type: 
  Country: None (occurrence: None)
  Receive Date: 20110316
  Receipt Date: 20110303
  Transmission Date: 20110831
  Serious: Yes (Other)
  Sender: FDA-Public Use
  Company Number: PHHY2011AT16337

PATIENT
  Age: 53 Year
  Sex: Female

DRUGS (2)
  1. EXFORGE [Suspect]
  2. RASILEZ HCT [Suspect]

REACTIONS (5)
  - LIPID METABOLISM DISORDER [None]
  - BLOOD PRESSURE INADEQUATELY CONTROLLED [None]
  - DRUG INEFFECTIVE [None]
  - BLOOD TRIGLYCERIDES INCREASED [None]
  - BLOOD CHOLESTEROL INCREASED [None]
